FAERS Safety Report 7123557-9 (Version None)
Quarter: 2010Q4

REPORT INFORMATION
  Report Type: 
  Country: None (occurrence: None)
  Receive Date: 20101125
  Receipt Date: 20101116
  Transmission Date: 20110411
  Serious: Yes (Hospitalization)
  Sender: FDA-Public Use
  Company Number: FR-AMGEN-FRANI2010000667

PATIENT

DRUGS (4)
  1. DARBEPOETIN ALFA [Suspect]
     Indication: RENAL FAILURE CHRONIC
     Dosage: 30 A?G, QWK
     Route: 042
     Dates: start: 20070115
  2. KAYEXALATE [Concomitant]
  3. SINTROM [Concomitant]
     Dosage: 1.2 MG, UNK
  4. NORDITROPINE [Concomitant]

REACTIONS (3)
  - DEVICE RELATED INFECTION [None]
  - PSEUDOMONAS INFECTION [None]
  - SEPSIS [None]
